FAERS Safety Report 11166773 (Version 1)
Quarter: 2015Q2

REPORT INFORMATION
  Report Type: Spontaneous
  Country: GR (occurrence: None)
  Receive Date: 20150603
  Receipt Date: 20150603
  Transmission Date: 20150821
  Serious: Yes (Death, Hospitalization)
  Sender: FDA-Public Use
  Company Number: INT_00787_2015

PATIENT

DRUGS (2)
  1. VINORELBINE [Suspect]
     Active Substance: VINORELBINE\VINORELBINE TARTRATE
     Indication: NON-SMALL CELL LUNG CANCER
     Dosage: MONDAY, WEDNESDAY, FRIDAY, ORAL
     Route: 048
  2. CISPLATIN (CISPLATIN) (HQ SPECIALTY) [Suspect]
     Active Substance: CISPLATIN
     Indication: NON-SMALL CELL LUNG CANCER
     Dosage: 80 MG/M2  1X/3 WEEKS, OVER 1 H INFUSION, ON DAY 1 AFTER ADQUATE HYDRATION)

REACTIONS (2)
  - Febrile neutropenia [None]
  - Sepsis [None]
